FAERS Safety Report 7052325-1 (Version None)
Quarter: 2010Q4

REPORT INFORMATION
  Report Type: 
  Country: None (occurrence: None)
  Receive Date: 20101018
  Receipt Date: 20101018
  Transmission Date: 20110411
  Serious: Yes (Other)
  Sender: FDA-Public Use
  Company Number: None

PATIENT
  Age: 62 Year
  Sex: Female
  Weight: 105.6881 kg

DRUGS (1)
  1. AZASITE [Suspect]
     Indication: EYELID INFECTION
     Dosage: 1 DROP 2X DAILY (MINUTES-WASH OUT)
     Dates: start: 20101014, end: 20101014

REACTIONS (3)
  - BURNING SENSATION [None]
  - OCULAR HYPERAEMIA [None]
  - PAIN [None]
